FAERS Safety Report 7396404-8 (Version None)
Quarter: 2011Q2

REPORT INFORMATION
  Report Type: 
  Country: None (occurrence: None)
  Receive Date: 20110406
  Receipt Date: 20110322
  Transmission Date: 20111010
  Serious: Yes (Hospitalization)
  Sender: FDA-Public Use
  Company Number: US-ENDO PHARMACEUTICALS INC.-HCTZ20110004

PATIENT
  Sex: Male
  Weight: 76.726 kg

DRUGS (9)
  1. VEGF TRAP-EYE [Suspect]
     Indication: MACULAR DEGENERATION
     Dosage: 25 MG/200 MG
     Dates: start: 20100713
  2. AGGRENOX [Suspect]
     Indication: ISCHAEMIC CEREBRAL INFARCTION
     Dosage: UNKNOWN
     Route: 048
     Dates: start: 20100208, end: 20110104
  3. HYDROCHLOROTHIAZIDE [Suspect]
     Indication: HYPERTENSION
     Route: 048
     Dates: start: 19980101
  4. METOPROLOL TARTRATE [Concomitant]
     Indication: HYPERTENSION
     Route: 048
     Dates: start: 20070101
  5. AMLODIPINE [Concomitant]
     Indication: HYPERTENSION
     Dates: start: 20080301
  6. VEGF TRAP-EYE [Suspect]
     Dosage: 25 MG/200 MG
     Dates: start: 20090709, end: 20100613
  7. DOXAZOSIN [Concomitant]
     Indication: HYPERTENSION
     Route: 048
     Dates: start: 20080101
  8. LISINOPRIL [Concomitant]
     Indication: HYPERTENSION
     Dosage: UNKNOWN
     Route: 048
     Dates: start: 20021001
  9. LIPITOR [Concomitant]
     Indication: HYPERLIPIDAEMIA
     Route: 048
     Dates: start: 20021001

REACTIONS (1)
  - RENAL FAILURE ACUTE [None]
